FAERS Safety Report 12584605 (Version 2)
Quarter: 2016Q3

REPORT INFORMATION
  Report Type: Spontaneous
  Country: FR (occurrence: FR)
  Receive Date: 20160722
  Receipt Date: 20160815
  Transmission Date: 20161109
  Serious: Yes (Death, Hospitalization, Other)
  Sender: FDA-Public Use
  Company Number: FR-SA-2016SA121255

PATIENT
  Age: 87 Year
  Sex: Female
  Weight: 68 kg

DRUGS (39)
  1. LOVENOX [Suspect]
     Active Substance: ENOXAPARIN SODIUM
     Indication: ATRIAL FIBRILLATION
     Route: 051
     Dates: start: 201206, end: 201206
  2. LASILIX [Concomitant]
     Active Substance: FUROSEMIDE
     Route: 065
     Dates: start: 20120603, end: 20120603
  3. LASILIX [Concomitant]
     Active Substance: FUROSEMIDE
     Route: 065
     Dates: start: 20120612, end: 20120613
  4. LOVENOX [Suspect]
     Active Substance: ENOXAPARIN SODIUM
     Indication: THROMBOSIS PROPHYLAXIS
     Route: 051
     Dates: start: 201206, end: 201206
  5. LOVENOX [Suspect]
     Active Substance: ENOXAPARIN SODIUM
     Indication: ATRIAL FIBRILLATION
     Route: 051
     Dates: start: 201206, end: 20120613
  6. LOVENOX [Suspect]
     Active Substance: ENOXAPARIN SODIUM
     Indication: THROMBOSIS PROPHYLAXIS
     Route: 051
     Dates: start: 201206, end: 20120613
  7. SOLUPRED [Concomitant]
     Active Substance: PREDNISOLONE
     Route: 065
     Dates: start: 20120525, end: 20120609
  8. SERETIDE [Concomitant]
     Active Substance: FLUTICASONE PROPIONATE\SALMETEROL XINAFOATE
     Route: 065
     Dates: start: 20120609, end: 20120609
  9. TOPALGIC [Concomitant]
     Active Substance: TRAMADOL
     Route: 065
     Dates: start: 20120525, end: 20120604
  10. ZALDIAR [Concomitant]
     Active Substance: ACETAMINOPHEN\TRAMADOL HYDROCHLORIDE
     Route: 065
     Dates: start: 20120602, end: 20120603
  11. OROKEN [Concomitant]
     Active Substance: CEFIXIME
     Route: 065
     Dates: start: 20120606, end: 20120613
  12. CORDARONE [Concomitant]
     Active Substance: AMIODARONE HYDROCHLORIDE
     Route: 065
     Dates: start: 20120601, end: 20120609
  13. LASILIX [Concomitant]
     Active Substance: FUROSEMIDE
     Route: 065
     Dates: start: 20120608, end: 20120609
  14. SERETIDE [Concomitant]
     Active Substance: FLUTICASONE PROPIONATE\SALMETEROL XINAFOATE
     Route: 065
     Dates: start: 20120608, end: 20120608
  15. EUPANTOL [Concomitant]
     Active Substance: PANTOPRAZOLE SODIUM
     Route: 065
     Dates: start: 20120525, end: 20120607
  16. ZALDIAR [Concomitant]
     Active Substance: ACETAMINOPHEN\TRAMADOL HYDROCHLORIDE
     Route: 065
     Dates: start: 20120606, end: 20120608
  17. LASILIX [Concomitant]
     Active Substance: FUROSEMIDE
     Route: 065
     Dates: start: 20120604, end: 20120606
  18. LEVOTHYROX [Concomitant]
     Active Substance: LEVOTHYROXINE
     Route: 065
     Dates: start: 20120525, end: 20120619
  19. SERETIDE [Concomitant]
     Active Substance: FLUTICASONE PROPIONATE\SALMETEROL XINAFOATE
     Route: 065
     Dates: start: 20120525, end: 20120607
  20. XANAX [Concomitant]
     Active Substance: ALPRAZOLAM
     Route: 065
     Dates: start: 20120525, end: 20120609
  21. LOVENOX [Suspect]
     Active Substance: ENOXAPARIN SODIUM
     Indication: ATRIAL FIBRILLATION
     Dosage: 0,7 ML AT 15:00 AND AT 21:00 0,7 ML BID 0,6 ML
     Route: 051
     Dates: start: 20120606, end: 20120606
  22. PYOSTACINE [Concomitant]
     Active Substance: PRISTINAMYCIN
     Route: 065
     Dates: start: 20120530, end: 20120603
  23. LOVENOX [Suspect]
     Active Substance: ENOXAPARIN SODIUM
     Indication: THROMBOSIS PROPHYLAXIS
     Dosage: 0,7 ML AT 15:00 AND AT 21:00 0,7 ML BID 0,6 ML
     Route: 051
     Dates: start: 20120606, end: 20120606
  24. KARDEGIC [Concomitant]
     Active Substance: ASPIRIN LYSINE
     Route: 065
     Dates: start: 20120525, end: 20120608
  25. LASILIX [Concomitant]
     Active Substance: FUROSEMIDE
     Route: 065
     Dates: start: 20120525, end: 20120531
  26. LASILIX [Concomitant]
     Active Substance: FUROSEMIDE
     Route: 065
     Dates: start: 20120601, end: 20120602
  27. REQUIP [Concomitant]
     Active Substance: ROPINIROLE HYDROCHLORIDE
     Route: 065
     Dates: start: 20120525, end: 20120612
  28. SEROPLEX [Concomitant]
     Active Substance: ESCITALOPRAM OXALATE
     Route: 065
     Dates: start: 20120525, end: 20120609
  29. LORATADINE. [Concomitant]
     Active Substance: LORATADINE
     Route: 065
     Dates: start: 20120525, end: 20120607
  30. CIFLOX [Concomitant]
     Active Substance: CIPROFLOXACIN
     Route: 065
     Dates: start: 20120606, end: 20120613
  31. SURBRONC [Concomitant]
     Active Substance: AMBROXOL HYDROCHLORIDE
     Route: 065
     Dates: start: 20120608, end: 20120612
  32. MONO-TILDIEM [Concomitant]
     Active Substance: DILTIAZEM HYDROCHLORIDE
     Route: 065
     Dates: start: 20120525, end: 20120613
  33. LASILIX [Concomitant]
     Active Substance: FUROSEMIDE
     Route: 065
     Dates: start: 20120607, end: 20120607
  34. FORLAX [Concomitant]
     Active Substance: POLYETHYLENE GLYCOL 4000
     Route: 065
     Dates: start: 20120608, end: 20120608
  35. TAREG [Concomitant]
     Active Substance: VALSARTAN
     Route: 065
     Dates: start: 20120525, end: 20120613
  36. LASILIX [Concomitant]
     Active Substance: FUROSEMIDE
     Route: 065
     Dates: start: 20120614, end: 20120614
  37. TOPALGIC [Concomitant]
     Active Substance: TRAMADOL
     Route: 065
     Dates: start: 20120604, end: 20120606
  38. DOLIPRANE [Concomitant]
     Active Substance: ACETAMINOPHEN
     Route: 065
     Dates: start: 20120525, end: 20120601
  39. SURBRONC [Concomitant]
     Active Substance: AMBROXOL HYDROCHLORIDE
     Route: 065
     Dates: start: 20120613, end: 20120614

REACTIONS (12)
  - Creatinine renal clearance decreased [Fatal]
  - Organ failure [Fatal]
  - Shock haemorrhagic [Fatal]
  - Haemoglobin decreased [Fatal]
  - Inappropriate schedule of drug administration [Unknown]
  - Gastrointestinal haemorrhage [Fatal]
  - Chest pain [Unknown]
  - Haematoma [Fatal]
  - Haematoma [Not Recovered/Not Resolved]
  - Muscle haemorrhage [Fatal]
  - Abdominal distension [Fatal]
  - Product use issue [Unknown]

NARRATIVE: CASE EVENT DATE: 201206
